FAERS Safety Report 8802692 (Version 1)
Quarter: 2012Q4

REPORT INFORMATION
  Report Type: 
  Country: US (occurrence: US)
  Receive Date: 20120921
  Receipt Date: 20120921
  Transmission Date: 20130627
  Serious: Yes (Death, Hospitalization, Other)
  Sender: FDA-Public Use
  Company Number: US-B.I. PHARMACEUTICALS,INC./RIDGEFIELD-2012-BP-23038BP

PATIENT
  Age: 95 None
  Sex: Female

DRUGS (15)
  1. PRADAXA [Suspect]
     Indication: ATRIAL FIBRILLATION
     Dosage: 150 mg
     Route: 048
     Dates: start: 2010, end: 2012
  2. PRADAXA [Suspect]
     Indication: ATRIAL FIBRILLATION
     Dosage: 150 mg
     Route: 048
     Dates: start: 20120302
  3. PREDNISONE [Concomitant]
     Dosage: 2.5 mg
     Route: 048
  4. METOLAZONE [Concomitant]
     Dosage: 5 mg
     Route: 048
  5. DIGOXIN [Concomitant]
     Dosage: 125 mcg
     Route: 048
  6. OMEGA 3 [Concomitant]
     Dosage: 2000 mg
     Route: 048
  7. FUROSEMIDE [Concomitant]
     Dosage: 40 mg
     Route: 048
  8. FUROSEMIDE [Concomitant]
     Dosage: 20 mg
     Route: 048
  9. JANUVIA [Concomitant]
     Dosage: 50 mg
     Route: 048
  10. CALCIUM WITH VITAMIN D [Concomitant]
     Route: 048
  11. LORATIDINE [Concomitant]
     Dosage: 10 mg
     Route: 048
  12. LISINOPRIL [Concomitant]
     Dosage: 20 mg
     Route: 048
  13. METOPROLOL [Concomitant]
     Dosage: 25 mg
     Route: 048
  14. VITAMIN D [Concomitant]
  15. ALEMDRONATE [Concomitant]

REACTIONS (5)
  - Death [Fatal]
  - Haemorrhage intracranial [Recovered/Resolved]
  - Fall [Unknown]
  - Head injury [Unknown]
  - Cerebrovascular accident [Unknown]
